FAERS Safety Report 6005598-8 (Version None)
Quarter: 2008Q4

REPORT INFORMATION
  Report Type: 
  Country: None (occurrence: None)
  Receive Date: 20081217
  Receipt Date: 20081208
  Transmission Date: 20090506
  Serious: Yes (Congenital Anomaly)
  Sender: FDA-Public Use
  Company Number: US-PFIZER INC-2008151118

PATIENT
  Sex: Male

DRUGS (6)
  1. ARGATROBAN [Suspect]
     Indication: THROMBOCYTOPENIA
     Dosage: UNK
     Route: 064
  2. ENOXAPARIN SODIUM [Concomitant]
     Dosage: 160 MG, UNK
  3. FOLIC ACID [Concomitant]
     Route: 064
  4. POTASSIUM CARBONATE [Concomitant]
     Route: 064
  5. MULTI-VITAMINS [Concomitant]
  6. DEXAMETHASONE [Suspect]

REACTIONS (2)
  - ATRIAL SEPTAL DEFECT [None]
  - VENTRICULAR SEPTAL DEFECT [None]
